FAERS Safety Report 5402407-2 (Version None)
Quarter: 2007Q3

REPORT INFORMATION
  Report Type: 
  Country: None (occurrence: None)
  Receive Date: 20070730
  Receipt Date: 20070730
  Transmission Date: 20080115
  Serious: Yes (Death, Congenital Anomaly)
  Sender: FDA-Public Use
  Company Number: None

PATIENT
  Age: 4 Day
  Sex: Male
  Weight: 3.6288 kg

DRUGS (2)
  1. LOVENOX [Suspect]
     Indication: ABORTION SPONTANEOUS
     Dosage: 40 MG DAILY SQ
     Route: 058
  2. LOVENOX [Suspect]
     Indication: THROMBOSIS
     Dosage: 40 MG DAILY SQ
     Route: 058

REACTIONS (3)
  - AMINO ACID METABOLISM DISORDER [None]
  - DRUG EXPOSURE DURING PREGNANCY [None]
  - X-LINKED CHROMOSOMAL DISORDER [None]
